FAERS Safety Report 4964051-0 (Version None)
Quarter: 2006Q1

REPORT INFORMATION
  Report Type: 
  Country: None (occurrence: None)
  Receive Date: 20060330
  Receipt Date: 20060308
  Transmission Date: 20060701
  Serious: Yes (Hospitalization)
  Sender: FDA-Public Use
  Company Number: US200603002083

PATIENT
  Age: 53 Year
  Sex: Female

DRUGS (7)
  1. HUMULIN R [Suspect]
     Indication: DIABETES MELLITUS
     Dates: start: 19790101
  2. HUMULIN N [Suspect]
     Indication: DIABETES MELLITUS
     Dates: start: 19790101
  3. HUMALOG PEN [Suspect]
     Indication: DIABETES MELLITUS
     Dosage: 8 U, 3/D
     Dates: start: 20060228
  4. HUMALOG MIX 75/25 [Suspect]
     Indication: DIABETES MELLITUS
     Dates: end: 20060228
  5. HUMALOG MIX 75/25 [Suspect]
     Indication: DIABETES MELLITUS
     Dates: start: 20060228
  6. ACTOS (PIOGLITAZONE UNKNOWN FORMULATION) [Concomitant]
  7. METFORMIN HCL [Concomitant]

REACTIONS (4)
  - CARDIAC DISORDER [None]
  - DIABETES MELLITUS INADEQUATE CONTROL [None]
  - PHARMACEUTICAL PRODUCT COMPLAINT [None]
  - READING DISORDER [None]
